FAERS Safety Report 5047261-6 (Version None)
Quarter: 2006Q3

REPORT INFORMATION
  Report Type: 
  Country: None (occurrence: None)
  Receive Date: 20060703
  Receipt Date: 20060619
  Transmission Date: 20061208
  Serious: Yes (Death, Hospitalization)
  Sender: FDA-Public Use
  Company Number: 111090ISR

PATIENT
  Age: 49 Year
  Sex: Female

DRUGS (7)
  1. METHOTREXATE [Suspect]
     Dosage: 24 GRAM
     Route: 042
     Dates: start: 20060118, end: 20060329
  2. DOXORUBICIN HCL [Suspect]
     Dosage: 400 MILLIGRAM
     Route: 042
     Dates: start: 20060119, end: 20060328
  3. VINCRISTINE [Suspect]
     Dosage: 8 MILLIGRAM
     Route: 042
     Dates: start: 20060119, end: 20060328
  4. MABTHERA (RITUXIMAB) [Suspect]
     Dosage: 3.75 MILLIGRAM
     Route: 042
     Dates: start: 20060119, end: 20060428
  5. ETOPOSIDE [Suspect]
     Dosage: 1.6 GRAM
     Route: 042
     Dates: start: 20060429, end: 20060503
  6. CYCLOPHOSPHAMIDE [Suspect]
     Dosage: 6 GRAM
     Route: 042
     Dates: start: 20060119, end: 20060328
  7. CYTARABINE [Suspect]
     Dosage: 24.5 GRAM
     Route: 042
     Dates: start: 20060118, end: 20060503

REACTIONS (14)
  - APHASIA [None]
  - APLASIA [None]
  - BONE MARROW FAILURE [None]
  - BRAIN OEDEMA [None]
  - CANDIDA SEPSIS [None]
  - CEREBRAL HAEMATOMA [None]
  - CEREBRAL HAEMORRHAGE [None]
  - ENTEROBACTER SEPSIS [None]
  - GENERAL PHYSICAL HEALTH DETERIORATION [None]
  - HEMIPARESIS [None]
  - HYPERTHERMIA [None]
  - INFLAMMATION [None]
  - PANCYTOPENIA [None]
  - SEPSIS [None]
